FAERS Safety Report 18839308 (Version 1)
Quarter: 2021Q1

REPORT INFORMATION
  Report Type: Report from Study
  Country: GB (occurrence: GB)
  Receive Date: 20210203
  Receipt Date: 20210203
  Transmission Date: 20210419
  Serious: No
  Sender: FDA-Public Use
  Company Number: GB-EXELIXIS-CABO-20032322

PATIENT
  Age: 64 Year
  Sex: Male

DRUGS (2)
  1. CABOMETYX [Suspect]
     Active Substance: CABOZANTINIB S-MALATE
     Dosage: 40 MG, QD
     Dates: start: 201909, end: 201911
  2. CABOMETYX [Suspect]
     Active Substance: CABOZANTINIB S-MALATE
     Indication: RENAL CELL CARCINOMA
     Dosage: 60 MG, QD
     Dates: start: 201906

REACTIONS (6)
  - Lower respiratory tract infection [Not Recovered/Not Resolved]
  - Mucosal inflammation [Unknown]
  - Muscular weakness [Not Recovered/Not Resolved]
  - Skin ulcer [Unknown]
  - Radiculopathy [Unknown]
  - Fatigue [Unknown]

NARRATIVE: CASE EVENT DATE: 201907
